FAERS Safety Report 9701302 (Version 2)
Quarter: 2015Q3

REPORT INFORMATION
  Report Type: Spontaneous
  Country: US (occurrence: US)
  Receive Date: 20131121
  Receipt Date: 20150803
  Transmission Date: 20151125
  Serious: No
  Sender: FDA-Public Use
  Company Number: US-GILEAD-2008-0016264

PATIENT
  Age: 85 Year
  Sex: Female

DRUGS (13)
  1. OSCAL 500+D [Concomitant]
  2. SYNTHROID [Concomitant]
     Active Substance: LEVOTHYROXINE SODIUM
  3. BONIVA [Concomitant]
     Active Substance: IBANDRONATE SODIUM
  4. ACULAR PF OPHTHALMIC SOLUTION [Concomitant]
     Route: 047
  5. COUMADIN [Concomitant]
     Active Substance: WARFARIN SODIUM
  6. FUROSEMIDE. [Concomitant]
     Active Substance: FUROSEMIDE
  7. PREDNISONE. [Concomitant]
     Active Substance: PREDNISONE
  8. LETAIRIS [Suspect]
     Active Substance: AMBRISENTAN
     Indication: PULMONARY ARTERIAL HYPERTENSION
     Route: 048
     Dates: start: 20080403, end: 20080406
  9. REVATIO [Concomitant]
     Active Substance: SILDENAFIL CITRATE
  10. ACIPHEX [Concomitant]
     Active Substance: RABEPRAZOLE SODIUM
  11. LOTREL [Concomitant]
     Active Substance: AMLODIPINE BESYLATE\BENAZEPRIL HYDROCHLORIDE
  12. IMURAN [Concomitant]
     Active Substance: AZATHIOPRINE
  13. XALANTAN OPH SOLN [Concomitant]
     Route: 047

REACTIONS (2)
  - Fatigue [Recovered/Resolved]
  - Fluid retention [Recovered/Resolved]

NARRATIVE: CASE EVENT DATE: 20080405
